FAERS Safety Report 10264802 (Version 2)
Quarter: 2014Q2

REPORT INFORMATION
  Report Type: Spontaneous
  Country: US (occurrence: US)
  Receive Date: 20140627
  Receipt Date: 20140627
  Transmission Date: 20141212
  Serious: No
  Sender: FDA-Public Use
  Company Number: US-ENDO PHARMACEUTICALS INC.-VALH20140003

PATIENT
  Age: 63 Year
  Sex: Male

DRUGS (2)
  1. VALSARTAN/HYDROCHLOROTHIAZIDE TABLETS 320MG/25MG [Suspect]
     Indication: HYPERTENSION
     Dosage: 320/25 MG
     Route: 048
     Dates: start: 201404
  2. VALSARTAN/HYDROCHLOROTHIAZIDE [Concomitant]
     Indication: PRODUCT USED FOR UNKNOWN INDICATION
     Dosage: 320/25 MG
     Route: 048
     Dates: end: 2014

REACTIONS (2)
  - Medication residue present [Unknown]
  - Drug ineffective [Unknown]
